FAERS Safety Report 14686991 (Version 1)
Quarter: 2018Q1

REPORT INFORMATION
  Report Type: Spontaneous
  Country: US (occurrence: US)
  Receive Date: 20180327
  Receipt Date: 20180327
  Transmission Date: 20180509
  Serious: No
  Sender: FDA-Public Use
  Company Number: US-TEVA-2018-US-874667

PATIENT
  Sex: Female

DRUGS (1)
  1. SIMVASTATIN. [Suspect]
     Active Substance: SIMVASTATIN
     Dosage: 10 MILLIGRAM DAILY; EACH EVENING
     Route: 065

REACTIONS (3)
  - Muscle spasms [Recovering/Resolving]
  - Malaise [Unknown]
  - Abdominal discomfort [Recovered/Resolved]
